FAERS Safety Report 4632076-0 (Version None)
Quarter: 2005Q2

REPORT INFORMATION
  Report Type: 
  Country: None (occurrence: None)
  Receive Date: 20050331
  Receipt Date: 20040301
  Transmission Date: 20051028
  Serious: Yes (Other)
  Sender: FDA-Public Use
  Company Number: 200411041BCC

PATIENT
  Age: 75 Year
  Sex: Female
  Weight: 65.7716 kg

DRUGS (4)
  1. ALEVE (CAPLET) [Suspect]
     Indication: POST PROCEDURAL PAIN
     Dosage: 660 MG, TOTAL DAILY, ORAL
     Route: 048
     Dates: start: 20040115
  2. LIPITOR [Concomitant]
  3. HYDROCODONE BITARTRATE [Concomitant]
  4. ASPIRIN [Concomitant]

REACTIONS (1)
  - BLOOD URINE PRESENT [None]
